FAERS Safety Report 10180526 (Version 1)
Quarter: 2014Q2

REPORT INFORMATION
  Report Type: Spontaneous
  Country: US (occurrence: US)
  Receive Date: 20140519
  Receipt Date: 20140519
  Transmission Date: 20141212
  Serious: No
  Sender: FDA-Public Use
  Company Number: US-MYLANLABS-2013S1019229

PATIENT
  Age: 58 Year
  Sex: Female

DRUGS (2)
  1. BUPROPION HYDROCHLORIDE EXTENDED-RELEASE TABLETS USP, (SR) [Suspect]
     Indication: ANXIETY
     Route: 048
     Dates: start: 20130825, end: 20130827
  2. BUPROPION HYDROCHLORIDE EXTENDED-RELEASE TABLETS USP, (SR) [Suspect]
     Indication: OFF LABEL USE
     Route: 048
     Dates: start: 20130825, end: 20130827

REACTIONS (2)
  - Insomnia [Not Recovered/Not Resolved]
  - Rash macular [Not Recovered/Not Resolved]
